FAERS Safety Report 5754394-5 (Version None)
Quarter: 2008Q2

REPORT INFORMATION
  Report Type: 
  Country: None (occurrence: None)
  Receive Date: 20080530
  Receipt Date: 20080522
  Transmission Date: 20081010
  Serious: Yes (Hospitalization)
  Sender: FDA-Public Use
  Company Number: US-AMGEN-QUU281606

PATIENT
  Sex: Female

DRUGS (2)
  1. ENBREL [Suspect]
     Indication: RHEUMATOID ARTHRITIS
  2. METHOTREXATE [Concomitant]
     Route: 048

REACTIONS (10)
  - ALOPECIA [None]
  - ANAESTHETIC COMPLICATION [None]
  - DIARRHOEA [None]
  - FALL [None]
  - INTERNAL FIXATION OF FRACTURE [None]
  - NAUSEA [None]
  - PROCEDURAL PAIN [None]
  - PRURITUS [None]
  - RHEUMATOID ARTHRITIS [None]
  - WRIST FRACTURE [None]
